FAERS Safety Report 10142290 (Version 4)
Quarter: 2014Q3

REPORT INFORMATION
  Report Type: Spontaneous
  Country: CH (occurrence: CH)
  Receive Date: 20140429
  Receipt Date: 20140716
  Transmission Date: 20150326
  Serious: Yes (Hospitalization, Other)
  Sender: FDA-Public Use
  Company Number: PHHY2014CH049467

PATIENT
  Age: 31 Year
  Sex: Female
  Weight: 55 kg

DRUGS (10)
  1. CO-AMOXI-MEPHA [Suspect]
     Active Substance: AMOXICILLIN\CLAVULANATE POTASSIUM
     Indication: PNEUMONIA
     Dosage: 1000 MG, BID
     Dates: start: 20140203, end: 20140209
  2. MUCO-MEPHA [Suspect]
     Active Substance: ACETYLCYSTEINE
     Indication: PNEUMONIA
     Dates: start: 20140203, end: 20140206
  3. VENTOLINE [Concomitant]
     Active Substance: ALBUTEROL
  4. DAFALGAN [Concomitant]
     Active Substance: ACETAMINOPHEN
     Indication: RIB FRACTURE
     Dates: start: 20140214, end: 20140219
  5. TRIOFAN [Concomitant]
     Active Substance: XYLOMETAZOLINE
     Dosage: DURING 2ND TRIMESTER OF PREGNANCY
  6. CITALOPRAM MEPHA [Suspect]
     Active Substance: CITALOPRAM HYDROBROMIDE
     Indication: ANXIETY DISORDER
     Dosage: 15 MG (5 TO 15 MG DURING THE WHOLE PREGNANCY)
     Route: 048
  7. SYMBICORT [Concomitant]
     Active Substance: BUDESONIDE\FORMOTEROL FUMARATE DIHYDRATE
     Dosage: DURING 2ND AND 3RD TRIMESTER OF PREGNANCY
  8. ALUCOL                             /00082501/ [Concomitant]
  9. OMEPRAZOLE. [Suspect]
     Active Substance: OMEPRAZOLE
     Indication: GASTROOESOPHAGEAL REFLUX DISEASE
     Dosage: 20 MG, UNK
     Dates: start: 20131030, end: 20140402
  10. TRAMAL [Concomitant]
     Active Substance: TRAMADOL
     Indication: RIB FRACTURE
     Dosage: 20 GTT, UNK
     Dates: start: 20140215, end: 20140218

REACTIONS (8)
  - Maternal exposure during pregnancy [Recovered/Resolved]
  - Inguinal hernia [Unknown]
  - Cough [Unknown]
  - Pneumonia [Recovered/Resolved]
  - Gestational hypertension [Not Recovered/Not Resolved]
  - Exposure during breast feeding [Not Recovered/Not Resolved]
  - Rib fracture [Recovered/Resolved]
  - Normal newborn [Recovered/Resolved]

NARRATIVE: CASE EVENT DATE: 20140214
